FAERS Safety Report 12107394 (Version 2)
Quarter: 2016Q1

REPORT INFORMATION
  Report Type: Report from Study
  Country: US (occurrence: US)
  Receive Date: 20160224
  Receipt Date: 20160302
  Transmission Date: 20160526
  Serious: Yes (Hospitalization)
  Sender: FDA-Public Use
  Company Number: US-ROCHE-1714248

PATIENT
  Sex: Female

DRUGS (1)
  1. CELLCEPT [Suspect]
     Active Substance: MYCOPHENOLATE MOFETIL\MYCOPHENOLATE MOFETIL HYDROCHLORIDE
     Indication: RENAL TRANSPLANT
     Dosage: 2 TABLETS IN THE MORNING, AND 2 TABLETS AT NIGHT.
     Route: 048
     Dates: start: 20041221

REACTIONS (7)
  - Cardiac failure congestive [Recovering/Resolving]
  - Type 2 diabetes mellitus [Recovering/Resolving]
  - Drug dose omission [Unknown]
  - Chronic obstructive pulmonary disease [Recovering/Resolving]
  - Sleep apnoea syndrome [Recovering/Resolving]
  - Fibromyalgia [Recovering/Resolving]
  - Asthma [Recovering/Resolving]
